FAERS Safety Report 8241365-2 (Version None)
Quarter: 2012Q1

REPORT INFORMATION
  Report Type: 
  Country: None (occurrence: None)
  Receive Date: 20120328
  Receipt Date: 20120322
  Transmission Date: 20120608
  Serious: Yes (Hospitalization, Other)
  Sender: FDA-Public Use
  Company Number: PHHY2012IT025332

PATIENT
  Sex: Female

DRUGS (10)
  1. ENALAPRIL MALEATE [Concomitant]
     Indication: HYPERTENSION
  2. TICLOPIDINE HCL [Suspect]
     Dosage: 2 DF
     Dates: start: 20111001, end: 20120310
  3. ATORVASTATIN [Concomitant]
  4. OMEPRAZOLE [Concomitant]
  5. DERMATRANS /ITA/ [Concomitant]
  6. PAROXETINE HCL [Concomitant]
  7. SINTROM [Suspect]
     Indication: MYOCARDIAL ISCHAEMIA
     Route: 048
     Dates: start: 20111001, end: 20120303
  8. SINTROM [Suspect]
     Dosage: 3 MG, QD
     Route: 048
     Dates: start: 20120304, end: 20120310
  9. FUROSEMIDE [Concomitant]
  10. NEBIVOLOL [Concomitant]

REACTIONS (7)
  - HAEMATURIA [None]
  - GINGIVAL BLEEDING [None]
  - HAEMOGLOBIN DECREASED [None]
  - BLOOD PRESSURE SYSTOLIC INCREASED [None]
  - INTERNATIONAL NORMALISED RATIO INCREASED [None]
  - COAGULOPATHY [None]
  - OVERDOSE [None]
